FAERS Safety Report 4748595-2 (Version None)
Quarter: 2005Q3

REPORT INFORMATION
  Report Type: 
  Country: None (occurrence: None)
  Receive Date: 20050817
  Receipt Date: 20050805
  Transmission Date: 20060218
  Serious: No
  Sender: FDA-Public Use
  Company Number: MEDI-0003592

PATIENT
  Age: 72 Year
  Sex: Male

DRUGS (13)
  1. ETHYOL [Suspect]
     Indication: CHEMOTHERAPY
     Dosage: 500 MG, SUBCUTANEOUS
     Route: 058
     Dates: start: 20050512, end: 20050523
  2. ETHYOL [Suspect]
     Indication: RADIOTHERAPY
     Dosage: 500 MG, SUBCUTANEOUS
     Route: 058
     Dates: start: 20050512, end: 20050523
  3. RADIATION THERAPY [Concomitant]
  4. TAXOL [Concomitant]
  5. CARBOPLATIN [Concomitant]
  6. KYTRIL [Concomitant]
  7. DECADRON [Concomitant]
  8. TAGAMET [Concomitant]
  9. BENADRYL [Concomitant]
  10. ATIVAN [Concomitant]
  11. HYDROCHLOROTHIAZIDE/TRIAMTERENE (HYDROCHLOROTHIAZIDE, TRIAMTERENE) [Concomitant]
  12. TERAZOSIN (TERAZOSIN) [Concomitant]
  13. ZYRTEC [Concomitant]

REACTIONS (4)
  - CHILLS [None]
  - INJECTION SITE ERYTHEMA [None]
  - INJECTION SITE WARMTH [None]
  - TYPE I HYPERSENSITIVITY [None]
